FAERS Safety Report 7089352-4 (Version None)
Quarter: 2010Q4

REPORT INFORMATION
  Report Type: 
  Country: None (occurrence: None)
  Receive Date: 20101108
  Receipt Date: 20101027
  Transmission Date: 20110411
  Serious: Yes (Death)
  Sender: FDA-Public Use
  Company Number: NL-ACTELION-A-CH2010-40419

PATIENT
  Sex: Female

DRUGS (1)
  1. BOSENTAN TABLET UNKNOWN  EU MG [Suspect]
     Dosage: UNK , UNK
     Route: 048

REACTIONS (1)
  - SUDDEN DEATH [None]
